FAERS Safety Report 10311357 (Version 2)
Quarter: 2014Q3

REPORT INFORMATION
  Report Type: Spontaneous
  Country: US (occurrence: US)
  Receive Date: 20140717
  Receipt Date: 20140915
  Transmission Date: 20150326
  Serious: Yes (Other)
  Sender: FDA-Public Use
  Company Number: US-SA-2014SA093546

PATIENT
  Age: 63 Year
  Sex: Female

DRUGS (1)
  1. THYROGEN [Suspect]
     Active Substance: THYROTROPIN ALFA
     Indication: DIAGNOSTIC PROCEDURE
     Dosage: 2 DOSES
     Route: 065
     Dates: start: 20120503, end: 20120504

REACTIONS (2)
  - Dysphagia [Not Recovered/Not Resolved]
  - Thyroid mass [Not Recovered/Not Resolved]
